FAERS Safety Report 14365970 (Version 1)
Quarter: 2018Q1

REPORT INFORMATION
  Report Type: Other
  Country: PT (occurrence: PT)
  Receive Date: 20180109
  Receipt Date: 20180109
  Transmission Date: 20180509
  Serious: Yes (Life-Threatening, Other)
  Sender: FDA-Public Use
  Company Number: PT-GLENMARK PHARMACEUTICALS-2017GMK030452

PATIENT

DRUGS (19)
  1. DEXAMETHASONE SODIUM PHOSPHATE. [Suspect]
     Active Substance: DEXAMETHASONE SODIUM PHOSPHATE
     Indication: PRODUCT USED FOR UNKNOWN INDICATION
     Dosage: UNK
     Route: 065
  2. DEFLAZACORT [Suspect]
     Active Substance: DEFLAZACORT
     Indication: ASTHMA
     Dosage: UNK
     Route: 062
  3. DESLORATADINE. [Suspect]
     Active Substance: DESLORATADINE
     Indication: URTICARIA CHRONIC
  4. HYDROCORTISONE BUTYRATE. [Suspect]
     Active Substance: HYDROCORTISONE BUTYRATE
     Indication: ASTHMA
  5. METHYLPREDNISOLONE. [Suspect]
     Active Substance: METHYLPREDNISOLONE
     Indication: URTICARIA CHRONIC
  6. CLARITINE [Suspect]
     Active Substance: LORATADINE
     Indication: ASTHMA
     Dosage: UNK
     Route: 065
  7. PARACETAMOL [Suspect]
     Active Substance: ACETAMINOPHEN
     Indication: ASTHMA
  8. HYDROXYZINE [Suspect]
     Active Substance: HYDROXYZINE HYDROCHLORIDE
     Indication: PRODUCT USED FOR UNKNOWN INDICATION
     Dosage: UNK
     Route: 065
  9. MONTELUKAST SODIUM. [Suspect]
     Active Substance: MONTELUKAST SODIUM
     Indication: PRODUCT USED FOR UNKNOWN INDICATION
     Dosage: UNK
     Route: 065
  10. HYDROCORTISONE BUTYRATE. [Suspect]
     Active Substance: HYDROCORTISONE BUTYRATE
     Indication: URTICARIA CHRONIC
     Dosage: UNK
     Route: 062
  11. CETIRIZINE HYDROCHLORIDE. [Suspect]
     Active Substance: CETIRIZINE HYDROCHLORIDE
     Indication: URTICARIA CHRONIC
     Dosage: UNK
     Route: 065
  12. EBASTINE [Suspect]
     Active Substance: EBASTINE
     Indication: PRODUCT USED FOR UNKNOWN INDICATION
     Dosage: UNK
     Route: 065
  13. IBUPROFEN. [Suspect]
     Active Substance: IBUPROFEN
     Indication: URTICARIA CHRONIC
     Route: 065
  14. METHYLPREDNISOLONE. [Suspect]
     Active Substance: METHYLPREDNISOLONE
     Indication: ASTHMA
     Dosage: UNK
     Route: 065
  15. IBUPROFEN. [Suspect]
     Active Substance: IBUPROFEN
     Indication: ASTHMA
  16. DESLORATADINE. [Suspect]
     Active Substance: DESLORATADINE
     Indication: ASTHMA
     Dosage: UNK
     Route: 048
  17. FLURBIPROFEN. [Suspect]
     Active Substance: FLURBIPROFEN
     Indication: ASTHMA
     Dosage: UNK
     Route: 065
  18. DEFLAZACORT [Suspect]
     Active Substance: DEFLAZACORT
     Indication: URTICARIA CHRONIC
  19. PARACETAMOL [Suspect]
     Active Substance: ACETAMINOPHEN
     Indication: URTICARIA CHRONIC
     Dosage: UNK
     Route: 065

REACTIONS (6)
  - Urticaria [Recovering/Resolving]
  - Angioedema [Recovering/Resolving]
  - Allergy test positive [Unknown]
  - Drug reaction with eosinophilia and systemic symptoms [Unknown]
  - Product use in unapproved indication [Unknown]
  - Maternal exposure before pregnancy [Unknown]
